FAERS Safety Report 24114736 (Version 1)
Quarter: 2024Q3

REPORT INFORMATION
  Report Type: Spontaneous
  Country: US (occurrence: US)
  Receive Date: 20240721
  Receipt Date: 20240721
  Transmission Date: 20241017
  Serious: Yes (Hospitalization, Other)
  Sender: DR REDDYS
  Company Number: US-DRL-USA-LIT/USA/24/0010348

PATIENT
  Age: 64 Year
  Sex: Female

DRUGS (46)
  1. ZOLPIDEM [Suspect]
     Active Substance: ZOLPIDEM TARTRATE
     Indication: Depression
     Dosage: EVERY BEDTIME
     Route: 048
  2. ZOLPIDEM [Suspect]
     Active Substance: ZOLPIDEM TARTRATE
     Indication: Anxiety
     Dosage: ONCE PER NIGHT
     Route: 048
  3. ZOLPIDEM [Suspect]
     Active Substance: ZOLPIDEM TARTRATE
     Indication: Insomnia
  4. ROPINIROLE [Suspect]
     Active Substance: ROPINIROLE
     Indication: Product used for unknown indication
     Dosage: NOON
     Route: 048
  5. ROPINIROLE [Suspect]
     Active Substance: ROPINIROLE
     Dosage: ONCE PER NIGHT
     Route: 048
  6. ALLOPURINOL [Suspect]
     Active Substance: ALLOPURINOL
     Indication: Product used for unknown indication
     Route: 048
  7. FAMOTIDINE [Suspect]
     Active Substance: FAMOTIDINE
     Indication: Product used for unknown indication
     Route: 048
  8. MELOXICAM [Suspect]
     Active Substance: MELOXICAM
     Indication: Pain
     Dosage: 7.5 MG TWICE A DAY AS NEEDED
     Route: 048
  9. MONTELUKAST [Suspect]
     Active Substance: MONTELUKAST SODIUM
     Indication: Product used for unknown indication
     Route: 048
  10. PRAVASTATIN [Suspect]
     Active Substance: PRAVASTATIN
     Indication: Product used for unknown indication
     Route: 048
  11. ESZOPICLONE [Suspect]
     Active Substance: ESZOPICLONE
     Indication: Insomnia
     Dosage: ONCE EVERY NIGHT AS NEEDED
     Route: 048
  12. CLONIDINE [Suspect]
     Active Substance: CLONIDINE
     Indication: Product used for unknown indication
     Route: 048
  13. CLONIDINE [Suspect]
     Active Substance: CLONIDINE
     Dosage: ONCE EVERY NIGHT
     Route: 048
  14. SUCRALFATE [Suspect]
     Active Substance: SUCRALFATE
     Indication: Gastrooesophageal reflux disease
     Dosage: AS NEEDED
     Route: 048
  15. PIOGLITAZONE [Suspect]
     Active Substance: PIOGLITAZONE
     Indication: Product used for unknown indication
     Dosage: 15 MG/850MG TWICE A DAY
     Route: 048
  16. LOSARTAN [Suspect]
     Active Substance: LOSARTAN
     Indication: Product used for unknown indication
     Dosage: 50MCG 1 SPRAY TWICE A DAY AS NEEDED
     Route: 048
  17. HYDROCHLOROTHIAZIDE [Suspect]
     Active Substance: HYDROCHLOROTHIAZIDE
     Indication: Product used for unknown indication
     Route: 048
  18. OXYCODONE [Suspect]
     Active Substance: OXYCODONE
     Indication: Product used for unknown indication
     Dosage: EVERY 6 HOURS
     Route: 048
  19. GABAPENTIN [Suspect]
     Active Substance: GABAPENTIN
     Indication: Product used for unknown indication
     Dosage: AM, NOON
     Route: 048
  20. GABAPENTIN [Suspect]
     Active Substance: GABAPENTIN
     Dosage: ONCE PER NIGHT
     Route: 048
  21. AMITRIPTYLINE [Suspect]
     Active Substance: AMITRIPTYLINE
     Indication: Depression
     Dosage: ONCE PER NIGHT
     Route: 048
  22. AMITRIPTYLINE [Suspect]
     Active Substance: AMITRIPTYLINE
     Indication: Anxiety
  23. AMITRIPTYLINE [Suspect]
     Active Substance: AMITRIPTYLINE
     Indication: Insomnia
  24. SELEGILINE [Suspect]
     Active Substance: SELEGILINE
     Indication: Depression
     Route: 048
  25. SELEGILINE [Suspect]
     Active Substance: SELEGILINE
     Indication: Anxiety
  26. SELEGILINE [Suspect]
     Active Substance: SELEGILINE
     Indication: Insomnia
  27. PAROXETINE [Suspect]
     Active Substance: PAROXETINE
     Indication: Depression
     Route: 048
  28. PAROXETINE [Suspect]
     Active Substance: PAROXETINE
     Indication: Anxiety
  29. PAROXETINE [Suspect]
     Active Substance: PAROXETINE
     Indication: Insomnia
  30. MIRTAZAPINE [Suspect]
     Active Substance: MIRTAZAPINE
     Indication: Depression
     Dosage: ONCE PER NIGHT
     Route: 048
  31. MIRTAZAPINE [Suspect]
     Active Substance: MIRTAZAPINE
     Indication: Anxiety
  32. MIRTAZAPINE [Suspect]
     Active Substance: MIRTAZAPINE
     Indication: Insomnia
  33. BUPROPION [Suspect]
     Active Substance: BUPROPION
     Indication: Depression
     Route: 048
  34. BUPROPION [Suspect]
     Active Substance: BUPROPION
     Indication: Anxiety
  35. BUPROPION [Suspect]
     Active Substance: BUPROPION
     Indication: Insomnia
  36. DESVENLAFAXINE [Suspect]
     Active Substance: DESVENLAFAXINE
     Indication: Depression
     Route: 048
  37. DESVENLAFAXINE [Suspect]
     Active Substance: DESVENLAFAXINE
     Indication: Anxiety
  38. DESVENLAFAXINE [Suspect]
     Active Substance: DESVENLAFAXINE
     Indication: Insomnia
  39. RITALIN [Suspect]
     Active Substance: METHYLPHENIDATE HYDROCHLORIDE
     Indication: Depression
     Route: 048
  40. RITALIN [Suspect]
     Active Substance: METHYLPHENIDATE HYDROCHLORIDE
     Indication: Anxiety
  41. RITALIN [Suspect]
     Active Substance: METHYLPHENIDATE HYDROCHLORIDE
     Indication: Insomnia
  42. BACLOFEN [Suspect]
     Active Substance: BACLOFEN
     Indication: Product used for unknown indication
     Dosage: ONCE PER NIGHT
     Route: 048
  43. FERROUS GLUCONATE [Suspect]
     Active Substance: FERROUS GLUCONATE
     Indication: Product used for unknown indication
     Route: 048
  44. FLUTICASONE [Suspect]
     Active Substance: FLUTICASONE
     Indication: Product used for unknown indication
     Dosage: 50MCG 1 SPRAY TWICE A DAY AS NEEDED
     Route: 048
  45. AMLODIPINE [Concomitant]
     Active Substance: AMLODIPINE BESYLATE
     Indication: Product used for unknown indication
     Route: 048
  46. AMLODIPINE [Concomitant]
     Active Substance: AMLODIPINE BESYLATE
     Route: 048

REACTIONS (6)
  - Encephalopathy [Unknown]
  - Pneumonia [Unknown]
  - Treatment noncompliance [Unknown]
  - Multiple drug therapy [Unknown]
  - Product use in unapproved indication [Unknown]
  - Drug interaction [Unknown]
